FAERS Safety Report 13459002 (Version 4)
Quarter: 2017Q2

REPORT INFORMATION
  Report Type: Spontaneous
  Country: US (occurrence: US)
  Receive Date: 20170419
  Receipt Date: 20170503
  Transmission Date: 20170830
  Serious: Yes (Other)
  Sender: FDA-Public Use
  Company Number: US-AMGEN-USASP2017058791

PATIENT
  Age: 33 Year
  Sex: Female

DRUGS (1)
  1. ETANERCEPT [Suspect]
     Active Substance: ETANERCEPT
     Indication: RHEUMATOID ARTHRITIS
     Dosage: UNK
     Route: 065

REACTIONS (8)
  - Multiple sclerosis [Recovering/Resolving]
  - Tenosynovitis [Unknown]
  - Diplopia [Unknown]
  - Eyelid ptosis [Unknown]
  - Demyelination [Recovering/Resolving]
  - Gaze palsy [Unknown]
  - Rheumatoid arthritis [Unknown]
  - IIIrd nerve paralysis [Unknown]
